FAERS Safety Report 8881050 (Version 1)
Quarter: 2012Q4

REPORT INFORMATION
  Report Type: 
  Country: US (occurrence: US)
  Receive Date: 20121101
  Receipt Date: 20121101
  Transmission Date: 20130627
  Serious: No
  Sender: FDA-Public Use
  Company Number: US-009507513-1210USA011784

PATIENT
  Sex: Female

DRUGS (3)
  1. REBETOL [Suspect]
     Indication: HEPATITIS C
     Dosage: UNK
     Dates: start: 20120622
  2. VICTRELIS [Suspect]
     Indication: HEPATITIS C
     Dosage: UNK
     Dates: start: 20120722
  3. PEGASYS [Suspect]
     Dosage: UNK
     Dates: start: 20120622

REACTIONS (3)
  - Gait disturbance [Unknown]
  - Dysphagia [Unknown]
  - Nervous system disorder [Unknown]
